FAERS Safety Report 4757051-7 (Version None)
Quarter: 2005Q3

REPORT INFORMATION
  Report Type: 
  Country: None (occurrence: None)
  Receive Date: 20050831
  Receipt Date: 20020531
  Transmission Date: 20060218
  Serious: Yes (Hospitalization)
  Sender: FDA-Public Use
  Company Number: FR-BOEHRINGER INGELHEIM PHARMACEUTICALS, INC.-2002-FF-00359FF

PATIENT
  Sex: Female

DRUGS (5)
  1. VIRAMUNE [Suspect]
     Indication: HIV INFECTION
     Route: 015
  2. COMBIVIR [Suspect]
     Indication: HIV INFECTION
     Route: 015
  3. RETROVIR [Suspect]
     Indication: HIV INFECTION
     Route: 042
     Dates: start: 20000608, end: 20000617
  4. RETROVIR [Suspect]
     Indication: VERTICAL INFECTION TRANSMISSION
     Dosage: 100MG/10ML
     Route: 048
     Dates: start: 20000618, end: 20000704
  5. RETROVIR [Suspect]
     Route: 015

REACTIONS (7)
  - BLOOD KETONE BODY INCREASED [None]
  - DRUG EXPOSURE DURING PREGNANCY [None]
  - HYPERLACTACIDAEMIA [None]
  - HYPERLIPIDAEMIA [None]
  - HYPERTRIGLYCERIDAEMIA [None]
  - LACTATE PYRUVATE RATIO INCREASED [None]
  - NEONATAL DISORDER [None]
